FAERS Safety Report 6820071-2 (Version None)
Quarter: 2010Q3

REPORT INFORMATION
  Report Type: 
  Country: None (occurrence: None)
  Receive Date: 20100707
  Receipt Date: 20100628
  Transmission Date: 20110219
  Serious: Yes (Other)
  Sender: FDA-Public Use
  Company Number: B0662830A

PATIENT
  Age: 50 Year
  Sex: Female

DRUGS (1)
  1. ZELITREX [Suspect]
     Indication: PROPHYLAXIS
     Dosage: 1TAB EVERY 3 DAYS
     Route: 048

REACTIONS (1)
  - MACROCYTOSIS [None]
